FAERS Safety Report 9736620 (Version 1)
Quarter: 2013Q4

REPORT INFORMATION
  Report Type: Spontaneous
  Country: GB (occurrence: GB)
  Receive Date: 20131206
  Receipt Date: 20131206
  Transmission Date: 20140711
  Serious: Yes (Disabling, Other)
  Sender: FDA-Public Use
  Company Number: GB-PFIZER INC-2013347554

PATIENT
  Age: 67 Year
  Sex: Male
  Weight: 107 kg

DRUGS (16)
  1. PREGABALIN [Suspect]
     Indication: NEURALGIA
     Dosage: 25 MG, 2X/DAY
     Route: 048
     Dates: start: 20131009, end: 20131120
  2. BUMETANIDE [Concomitant]
     Dosage: UNK
  3. CARVEDILOL [Concomitant]
     Dosage: UNK
  4. EPLERENONE [Concomitant]
     Dosage: UNK
  5. EPLERENONE [Concomitant]
     Dosage: UNK
  6. WARFARIN [Concomitant]
     Dosage: UNK
  7. AMIODARONE [Concomitant]
     Dosage: UNK
  8. ISOSORBIDE MONONITRATE [Concomitant]
     Dosage: UNK
  9. ALLOPURINOL [Concomitant]
     Dosage: UNK
  10. LANSOPRAZOLE [Concomitant]
     Dosage: UNK
  11. GTN [Concomitant]
     Dosage: UNK
  12. NOVORAPID [Concomitant]
     Dosage: UNK
  13. LANTUS [Concomitant]
     Dosage: UNK
  14. SIMVASTATIN [Concomitant]
     Dosage: UNK
  15. FERROUS FUMARATE [Concomitant]
     Dosage: UNK
  16. METOLAZONE [Concomitant]
     Dosage: UNK

REACTIONS (10)
  - Weight increased [Not Recovered/Not Resolved]
  - Fluid retention [Not Recovered/Not Resolved]
  - Dyspnoea [Not Recovered/Not Resolved]
  - Skin tightness [Not Recovered/Not Resolved]
  - Abdominal distension [Not Recovered/Not Resolved]
  - Malaise [Unknown]
  - Local swelling [Unknown]
  - Burning sensation [Unknown]
  - Sensory disturbance [Unknown]
  - Cardiac disorder [Unknown]
